FAERS Safety Report 5533544-X (Version None)
Quarter: 2007Q4

REPORT INFORMATION
  Report Type: 
  Country: None (occurrence: None)
  Receive Date: 20071204
  Receipt Date: 20071123
  Transmission Date: 20080405
  Serious: Yes (Life-Threatening, Other)
  Sender: FDA-Public Use
  Company Number: FR-PFIZER INC-2007100342

PATIENT
  Age: 39 Year
  Sex: Female

DRUGS (1)
  1. CHAMPIX [Suspect]
     Indication: SMOKING CESSATION THERAPY
     Dates: start: 20070801, end: 20070101

REACTIONS (2)
  - DEPRESSION [None]
  - SUICIDE ATTEMPT [None]
